FAERS Safety Report 9168639 (Version 2)
Quarter: 2013Q1

REPORT INFORMATION
  Report Type: Spontaneous
  Country: US (occurrence: US)
  Receive Date: 20130315
  Receipt Date: 20130325
  Transmission Date: 20140127
  Serious: Yes (Other)
  Sender: FDA-Public Use
  Company Number: US-RB-051282-13

PATIENT
  Age: 21 Year
  Sex: Male

DRUGS (1)
  1. DELSYM [Suspect]
     Indication: DRUG ABUSE
     Dosage: STARTED APPROXIMATELY FOUR YEARS AGO USING PRODUCT WHOLE BOTTLE AT A TIME. LAST USED 1 YEAR AGO.
     Route: 048

REACTIONS (1)
  - Drug abuse [Recovered/Resolved]
